FAERS Safety Report 7527655-7 (Version None)
Quarter: 2011Q2

REPORT INFORMATION
  Report Type: 
  Country: None (occurrence: None)
  Receive Date: 20110607
  Receipt Date: 20110526
  Transmission Date: 20111010
  Serious: Yes (Congenital Anomaly)
  Sender: FDA-Public Use
  Company Number: US-RANBAXY-2011US-44225

PATIENT

DRUGS (2)
  1. VALTREX [Concomitant]
     Indication: HERPES VIRUS INFECTION
     Dosage: UNK
     Route: 065
  2. AMOXICILLIN [Suspect]
     Indication: MATERNAL USE OF ILLICIT DRUGS
     Dosage: 500 MG, TID
     Route: 065
     Dates: start: 20080329, end: 20080819

REACTIONS (4)
  - CONVULSION [None]
  - DRUG EXPOSURE DURING PREGNANCY [None]
  - DEVELOPMENTAL DELAY [None]
  - HYPOTONIA [None]
